FAERS Safety Report 5084136-0 (Version None)
Quarter: 2006Q3

REPORT INFORMATION
  Report Type: 
  Country: None (occurrence: None)
  Receive Date: 20060816
  Receipt Date: 20060808
  Transmission Date: 20061208
  Serious: Yes (Other)
  Sender: FDA-Public Use
  Company Number: 2006096921

PATIENT
  Age: 43 Year
  Sex: Female
  Weight: 95.709 kg

DRUGS (13)
  1. LISTERINE VANILLA MINT (MENTHOL,  METHYL SALICYLATE, EUCALYPTOL, THUMO [Suspect]
     Indication: DENTAL DISORDER PROPHYLAXIS
     Dosage: 1 CAPFUL ONCE, ORAL
     Route: 048
     Dates: start: 20060802, end: 20060802
  2. GABAPENTIN [Concomitant]
  3. FOLIC AICD (FLIC ACID) [Concomitant]
  4. METHOTREXATE [Concomitant]
  5. ASPIRIN [Concomitant]
  6. AMLODIPINE BESYLATE [Concomitant]
  7. PREDNISONE TAB [Concomitant]
  8. LEFUNOMIDE (LEFUNOMIDE) [Concomitant]
  9. CLOPIDOGREL SULFATE 9CLOPIDOGREL SULFATE) [Concomitant]
  10. IBUPROFEN [Concomitant]
  11. INFLIXIMAB (INFLIXIMAB) [Concomitant]
  12. ATORVASTATIN CALCIUM [Concomitant]
  13. LANSOPRAZOLE [Concomitant]

REACTIONS (3)
  - FLUSHING [None]
  - LACRIMATION INCREASED [None]
  - ORAL MUCOSAL BLISTERING [None]
